FAERS Safety Report 9788535 (Version 3)
Quarter: 2014Q2

REPORT INFORMATION
  Report Type: Report from Study
  Country: JP (occurrence: JP)
  Receive Date: 20131230
  Receipt Date: 20140603
  Transmission Date: 20141212
  Serious: Yes (Other)
  Sender: FDA-Public Use
  Company Number: PHHY2013JP152814

PATIENT
  Sex: 0
  Weight: 65 kg

DRUGS (17)
  1. AMN107 [Suspect]
     Indication: CHRONIC MYELOID LEUKAEMIA
     Dosage: 800 MG, DAILY
     Route: 048
     Dates: start: 20100623, end: 20100627
  2. AMN107 [Suspect]
     Dosage: 400 MG,DAILY
     Route: 048
     Dates: start: 20100628, end: 20100628
  3. AMN107 [Suspect]
     Dosage: 400 MG,DAILY
     Route: 048
     Dates: start: 20100630, end: 20100728
  4. AMN107 [Suspect]
     Dosage: 600 MG, DAILY
     Route: 048
     Dates: start: 20100729, end: 20120308
  5. AMN107 [Suspect]
     Dosage: 700 MG, DAILY
     Route: 048
     Dates: start: 20120322, end: 20120412
  6. AMN107 [Suspect]
     Dosage: 800 MG, DAILY
     Route: 048
     Dates: start: 20120413, end: 20120607
  7. AMN107 [Suspect]
     Dosage: 600 MG, DAILY (400MG AND 200 MG)
     Route: 048
     Dates: start: 20120622, end: 20120802
  8. AMN107 [Suspect]
     Dosage: 600 MG, DAILY
     Route: 048
     Dates: start: 20120816, end: 20120830
  9. AMN107 [Suspect]
     Dosage: 400 MG, DAILY
     Route: 048
     Dates: start: 20120914
  10. LAMISIL//TERBINAFINE [Concomitant]
     Route: 061
     Dates: start: 20120802
  11. HYALEIN [Concomitant]
     Indication: CONJUNCTIVITIS
     Route: 047
     Dates: start: 20100826
  12. CRAVIT [Concomitant]
     Indication: CONJUNCTIVITIS
     Route: 047
     Dates: start: 20100826
  13. MAGLAX [Concomitant]
     Dosage: 1.98 G, UNK
     Route: 048
     Dates: start: 20110203
  14. MAGLAX [Concomitant]
     Dosage: 2 G, UNK
     Route: 048
     Dates: start: 20110203
  15. POSTERISAN [Concomitant]
     Dates: start: 20110203, end: 20110304
  16. BIOFERMIN [Concomitant]
     Dosage: 3 G
     Dates: start: 20121004
  17. KAKKONTO [Concomitant]
     Dosage: 7.5 G, UNK
     Route: 048
     Dates: start: 20121220

REACTIONS (2)
  - Left atrial dilatation [Unknown]
  - Electrocardiogram QT prolonged [Recovered/Resolved]
